FAERS Safety Report 25922039 (Version 1)
Quarter: 2025Q4

REPORT INFORMATION
  Report Type: Spontaneous
  Country: EU (occurrence: EU)
  Receive Date: 20251015
  Receipt Date: 20251015
  Transmission Date: 20260117
  Serious: Yes (Death)
  Sender: CHEPLAPHARM
  Company Number: None

PATIENT
  Age: 68 Year
  Sex: Male
  Weight: 78 kg

DRUGS (6)
  1. OLANZAPINE [Suspect]
     Active Substance: OLANZAPINE
     Indication: Psychotic symptom
     Dosage: 1 TABLET ONCE A DAY?DAILY DOSE: 20 MILLIGRAM
     Route: 048
     Dates: start: 20250115
  2. OLANZAPINE [Suspect]
     Active Substance: OLANZAPINE
     Indication: Depressive symptom
     Dosage: 1 TABLET ONCE A DAY?DAILY DOSE: 20 MILLIGRAM
     Route: 048
     Dates: start: 20250115
  3. OLANZAPINE [Suspect]
     Active Substance: OLANZAPINE
     Indication: Psychotic symptom
  4. OLANZAPINE [Suspect]
     Active Substance: OLANZAPINE
     Indication: Depressive symptom
  5. LITHIUM CARBONATE [Suspect]
     Active Substance: LITHIUM CARBONATE
     Indication: Depression
     Dosage: 2 TABLETS ONCE A DAY?DAILY DOSE: 800 MILLIGRAM
     Route: 048
     Dates: start: 20190924
  6. NORTRIPTYLINE [Suspect]
     Active Substance: NORTRIPTYLINE
     Indication: Depression
     Dosage: 1 X DAILY 1 TABLET OF 50 MG + 25 MG?DAILY DOSE: 75 MILLIGRAM
     Route: 048
     Dates: start: 20170707

REACTIONS (1)
  - Completed suicide [Fatal]
